FAERS Safety Report 8468172-X (Version None)
Quarter: 2012Q2

REPORT INFORMATION
  Report Type: 
  Country: None (occurrence: None)
  Receive Date: 20120626
  Receipt Date: 20120622
  Transmission Date: 20120825
  Serious: Yes (Hospitalization)
  Sender: FDA-Public Use
  Company Number: US-MERCK-1204USA00766

PATIENT
  Age: 65 Year
  Sex: Male

DRUGS (3)
  1. JANUVIA [Suspect]
     Route: 048
  2. VICTOZA [Suspect]
     Route: 065
  3. GLYBURIDE [Suspect]
     Route: 065

REACTIONS (7)
  - NAUSEA [None]
  - HYPERBILIRUBINAEMIA [None]
  - BLOOD ALKALINE PHOSPHATASE INCREASED [None]
  - GALLBLADDER DISORDER [None]
  - ALANINE AMINOTRANSFERASE INCREASED [None]
  - ABDOMINAL PAIN [None]
  - ASPARTATE AMINOTRANSFERASE INCREASED [None]
